FAERS Safety Report 5455101-6 (Version None)
Quarter: 2007Q3

REPORT INFORMATION
  Report Type: 
  Country: None (occurrence: None)
  Receive Date: 20070913
  Receipt Date: 20070830
  Transmission Date: 20080115
  Serious: Yes (Hospitalization)
  Sender: FDA-Public Use
  Company Number: 100#03#2007-03357

PATIENT
  Age: 67 Year
  Sex: Female

DRUGS (9)
  1. CARBOPLATIN [Suspect]
     Indication: DRUG USE FOR UNKNOWN INDICATION
     Dates: start: 20070307, end: 20070418
  2. ETOPOSIDE [Suspect]
     Indication: SMALL CELL LUNG CANCER STAGE UNSPECIFIED
     Dosage: 100MG/M2 (AS NECESSARY); INTRAVENOUS (NOT OTHERWISE SPECIFIED)
     Route: 042
     Dates: start: 20070307, end: 20070420
  3. DEXAMETHASONE [Concomitant]
  4. FLUTICASONE PROPIONATE (FLUTICASONE PROPIONATE) (FLUTICASONE) [Concomitant]
  5. IBUPROFEN [Concomitant]
  6. LANSOPRAZOLE [Concomitant]
  7. MEBEVERINE (MEBEVERINE) (MEBEVERINE) [Concomitant]
  8. ONDANSETRON [Concomitant]
  9. SALMETEROL XINAFOATE (SALMETEROL XINAFOATE) (SALMETEROL) [Concomitant]

REACTIONS (5)
  - COLLAPSE OF LUNG [None]
  - LUNG CONSOLIDATION [None]
  - NEUTROPENIC SEPSIS [None]
  - RENAL FAILURE ACUTE [None]
  - RENAL TUBULAR NECROSIS [None]
